FAERS Safety Report 21143511 (Version 2)
Quarter: 2022Q3

REPORT INFORMATION
  Report Type: Spontaneous
  Country: IT (occurrence: IT)
  Receive Date: 20220728
  Receipt Date: 20220818
  Transmission Date: 20221026
  Serious: Yes (Other)
  Sender: FDA-Public Use
  Company Number: None

PATIENT
  Age: 83 Year
  Sex: Male

DRUGS (3)
  1. CANRENOATE POTASSIUM [Suspect]
     Active Substance: CANRENOATE POTASSIUM
     Dosage: UNK
  2. IRBESARTAN [Suspect]
     Active Substance: IRBESARTAN
     Dosage: THE DURATION OF THERAPY IS ASSIGNED EX OFFICIO.
     Dates: start: 20220101, end: 20220604
  3. BISOPROLOL FUMARATE [Suspect]
     Active Substance: BISOPROLOL FUMARATE
     Dosage: THE DURATION OF THERAPY IS ASSIGNED EX OFFICIO.
     Dates: start: 20220101, end: 20220604

REACTIONS (1)
  - Syncope [Recovered/Resolved]

NARRATIVE: CASE EVENT DATE: 20220604
